FAERS Safety Report 7408223-4 (Version None)
Quarter: 2011Q2

REPORT INFORMATION
  Report Type: 
  Country: None (occurrence: None)
  Receive Date: 20110412
  Receipt Date: 20101222
  Transmission Date: 20111010
  Serious: No
  Sender: FDA-Public Use
  Company Number: A0901405A

PATIENT
  Age: 62 Year
  Sex: Male
  Weight: 135.9 kg

DRUGS (2)
  1. JALYN [Suspect]
     Indication: BENIGN PROSTATIC HYPERPLASIA
     Dosage: 1CAP PER DAY
     Route: 048
     Dates: start: 20101027, end: 20101108
  2. NO CONCURRENT MEDICATION [Concomitant]

REACTIONS (3)
  - CONFUSIONAL STATE [None]
  - RASH [None]
  - URTICARIA [None]
